FAERS Safety Report 9248516 (Version 1)
Quarter: 2013Q1

REPORT INFORMATION
  Report Type: Spontaneous
  Country: US (occurrence: None)
  Receive Date: 20130305
  Receipt Date: 20130305
  Transmission Date: 20140127
  Serious: Yes (Other)
  Sender: FDA-Public Use
  Company Number: 163-21880-12092238

PATIENT
  Age: 86 Year
  Sex: Male
  Weight: 88.45 kg

DRUGS (3)
  1. REVLIMID [Suspect]
     Indication: MYELODYSPLASTIC SYNDROME
     Dosage: 10MG, 21 IN 21 D, PO
     Route: 048
     Dates: start: 20120825
  2. ATORVASTATIN (ATORVASTATIN) [Concomitant]
  3. PREDNISONE (PREDNISONE) [Concomitant]

REACTIONS (2)
  - Fatigue [None]
  - Platelet count decreased [None]
